FAERS Safety Report 18610305 (Version 1)
Quarter: 2020Q4

REPORT INFORMATION
  Report Type: Report from Study
  Country: FR (occurrence: FR)
  Receive Date: 20201214
  Receipt Date: 20201214
  Transmission Date: 20210114
  Serious: Yes (Other)
  Sender: FDA-Public Use
  Company Number: FR-ROCHE-2729622

PATIENT

DRUGS (7)
  1. BEVACIZUMAB. [Suspect]
     Active Substance: BEVACIZUMAB
     Indication: NEUROBLASTOMA
     Dosage: LAST DOSE ADMINSTERED PRIOR TO SAE ONSET: 13/MAY/2017
     Route: 042
     Dates: start: 20161114
  2. TOPOTECAN [Suspect]
     Active Substance: TOPOTECAN HYDROCHLORIDE
     Indication: NEUROBLASTOMA
     Dosage: DATE OF LAST DOSE ADMINSTERED PRIOR TO SAE ONSET: 13/MAY/2017
     Route: 048
     Dates: start: 20161114
  3. TOPOTECAN [Suspect]
     Active Substance: TOPOTECAN HYDROCHLORIDE
     Dosage: DATE OF LAST DOSE ADMINSTERED PRIOR TO SAE ONSET: 18/NOV/2016
     Route: 048
     Dates: start: 20161114
  4. BEVACIZUMAB. [Suspect]
     Active Substance: BEVACIZUMAB
     Dosage: LAST DOSE ADMINSTERED PRIOR TO SAE ONSET: 14/NOV/2016?LAST DOSE ADMINSTERED PRIOR TO SAE ONSET: 12/D
     Route: 042
     Dates: start: 20161114
  5. TEMOZOLOMIDE. [Suspect]
     Active Substance: TEMOZOLOMIDE
     Indication: NEUROBLASTOMA
     Dosage: LAST DOSE ADMINSTERED PRIOR TO SAE ONSET: 13/MAY/2017
     Route: 042
     Dates: start: 20161114
  6. TEMOZOLOMIDE. [Suspect]
     Active Substance: TEMOZOLOMIDE
     Dosage: LAST DOSE ADMINSTERED PRIOR TO SAE ONSET: 18/NOV/2016?LAST DOSE ADMINSTERED PRIOR TO SAE ONSET: 12/D
     Route: 042
     Dates: start: 20161114
  7. TOPOTECAN [Suspect]
     Active Substance: TOPOTECAN HYDROCHLORIDE
     Dosage: DATE OF LAST DOSE ADMINSTERED PRIOR TO SAE ONSET: 12/DEC/2016
     Route: 048
     Dates: start: 20161114

REACTIONS (2)
  - Platelet count decreased [Recovered/Resolved]
  - Packed red blood cell transfusion [Recovered/Resolved]

NARRATIVE: CASE EVENT DATE: 20161122
